FAERS Safety Report 15917318 (Version 3)
Quarter: 2019Q1

REPORT INFORMATION
  Report Type: Spontaneous
  Country: NL (occurrence: NL)
  Receive Date: 20190205
  Receipt Date: 20190228
  Transmission Date: 20190417
  Serious: Yes (Death, Hospitalization, Other)
  Sender: FDA-Public Use
  Company Number: NL-AUROBINDO-AUR-APL-2019-004880

PATIENT

DRUGS (9)
  1. ENOXIMONE [Suspect]
     Active Substance: ENOXIMONE
     Indication: CARDIOGENIC SHOCK
     Route: 065
  2. MIDAZOLAM [Concomitant]
     Active Substance: MIDAZOLAM HYDROCHLORIDE
     Indication: PRODUCT USED FOR UNKNOWN INDICATION
     Dosage: 2 MILLIGRAM (MIDAZOLAM: 50 %)
     Route: 065
  3. CIPROFLOXACIN. [Suspect]
     Active Substance: CIPROFLOXACIN
     Indication: SEPTIC SHOCK
     Dosage: UNK
     Route: 065
  4. ROCURONIUM [Concomitant]
     Active Substance: ROCURONIUM BROMIDE
     Indication: PRODUCT USED FOR UNKNOWN INDICATION
     Dosage: 100 MILLIGRAM
     Route: 065
  5. NORADRENALINE HOSPIRA [Suspect]
     Active Substance: NOREPINEPHRINE BITARTRATE
     Indication: CARDIOGENIC SHOCK
     Dosage: UNK
     Route: 065
  6. EPINEPHRINE. [Suspect]
     Active Substance: EPINEPHRINE
     Indication: CARDIOGENIC SHOCK
     Route: 042
  7. CEFUROXIME. [Suspect]
     Active Substance: CEFUROXIME
     Indication: SEPTIC SHOCK
     Route: 065
  8. SODIUM CHLORIDE. [Suspect]
     Active Substance: SODIUM CHLORIDE
     Indication: CARDIOGENIC SHOCK
     Route: 065
  9. GLUCOSE [Suspect]
     Active Substance: DEXTROSE
     Indication: CARDIOGENIC SHOCK
     Route: 065

REACTIONS (1)
  - Drug ineffective [Fatal]
